FAERS Safety Report 19495926 (Version 3)
Quarter: 2021Q3

REPORT INFORMATION
  Report Type: Report from Study
  Country: CO (occurrence: CO)
  Receive Date: 20210706
  Receipt Date: 20210928
  Transmission Date: 20211014
  Serious: Yes (Hospitalization, Other)
  Sender: FDA-Public Use
  Company Number: CO-BRISTOL-MYERS SQUIBB COMPANY-BMS-2021-063953

PATIENT
  Age: 60 Year
  Sex: Female
  Weight: 41 kg

DRUGS (1)
  1. ABATACEPT [Suspect]
     Active Substance: ABATACEPT
     Indication: RHEUMATOID ARTHRITIS
     Dosage: 500 MILLIGRAM, Q4WK
     Route: 042
     Dates: start: 20180929, end: 20210703

REACTIONS (7)
  - Post procedural haemorrhage [Unknown]
  - Procedural pain [Unknown]
  - Uterine disorder [Unknown]
  - Groin pain [Recovering/Resolving]
  - Vulvovaginal pain [Recovering/Resolving]
  - Vulvovaginal burning sensation [Recovering/Resolving]
  - Arthralgia [Recovering/Resolving]

NARRATIVE: CASE EVENT DATE: 20210718
